FAERS Safety Report 5881344-3 (Version None)
Quarter: 2008Q3

REPORT INFORMATION
  Report Type: 
  Country: None (occurrence: None)
  Receive Date: 20080912
  Receipt Date: 20080624
  Transmission Date: 20090109
  Serious: No
  Sender: FDA-Public Use
  Company Number: US-ABBOTT-08P-163-0459415-00

PATIENT
  Sex: Female
  Weight: 58.112 kg

DRUGS (4)
  1. HUMIRA [Suspect]
     Indication: COLITIS
     Route: 058
     Dates: start: 20080301, end: 20080401
  2. HUMIRA [Suspect]
     Indication: CROHN'S DISEASE
  3. MESALAMINE [Concomitant]
     Indication: COLITIS
     Route: 048
     Dates: start: 19960101
  4. MESALAMINE [Concomitant]
     Indication: CROHN'S DISEASE

REACTIONS (7)
  - INJECTION SITE ERYTHEMA [None]
  - INJECTION SITE PRURITUS [None]
  - INJECTION SITE RASH [None]
  - INJECTION SITE REACTION [None]
  - INJECTION SITE SWELLING [None]
  - INJECTION SITE WARMTH [None]
  - URTICARIA [None]
